FAERS Safety Report 13932400 (Version 2)
Quarter: 2017Q3

REPORT INFORMATION
  Report Type: Report from Study
  Country: DE (occurrence: DE)
  Receive Date: 20170904
  Receipt Date: 20170922
  Transmission Date: 20171127
  Serious: Yes (Hospitalization, Disabling)
  Sender: FDA-Public Use
  Company Number: DE-ROCHE-1015631

PATIENT
  Age: 49 Year
  Sex: Female
  Weight: 54 kg

DRUGS (13)
  1. DOCETAXEL. [Suspect]
     Active Substance: DOCETAXEL
     Indication: BREAST CANCER
     Dosage: BRAND NAME TAXOTERE. 6X DOCETAXEL 75MG/M2 DAY 1 Q28. DATE OF THE MOST RECENT DOSE PRIOR TO SAE: 27/O
     Route: 042
     Dates: start: 20110714
  2. DEXAMETHASON [Concomitant]
     Active Substance: DEXAMETHASONE
     Indication: VOMITING
     Dosage: PROPHYLAXIS OF VOMITUS, EDEMA, ALLERGY
     Route: 048
     Dates: start: 20111027, end: 20111027
  3. RANITIDIN [Concomitant]
     Active Substance: RANITIDINE HYDROCHLORIDE
     Dosage: PROPHYLAXIS OF ALLERGY
     Route: 042
     Dates: start: 20111027, end: 20111027
  4. NAVOBAN [Concomitant]
     Active Substance: TROPISETRON HYDROCHLORIDE
     Dosage: PROPHYLAXIS OF VOMITING
     Route: 042
     Dates: start: 20111027, end: 20111027
  5. CAPECITABINE. [Suspect]
     Active Substance: CAPECITABINE
     Indication: BREAST CANCER
     Dosage: BRAND NAME XELODA. 6X CAPECITABINE Q28 DOSE REDUCTION 28% AFTER CYCLE IV . DATE OF LAST DOSE PRIOR T
     Route: 065
     Dates: start: 20110714
  6. VOMEX A [Concomitant]
     Active Substance: DIMENHYDRINATE
     Dosage: VOMITING (PERSISTING)
     Route: 048
     Dates: start: 20110714, end: 20111110
  7. DEXAMETHASON [Concomitant]
     Active Substance: DEXAMETHASONE
     Indication: OEDEMA
     Route: 048
     Dates: start: 20111027, end: 20111029
  8. FENISTIL (GERMANY) [Concomitant]
     Dosage: PROPHYLAXIS OF ALLERGY, 1 BEFORE CHEMOTHERAPY
     Route: 042
     Dates: start: 20111027, end: 20111027
  9. IVEMEND [Concomitant]
     Active Substance: FOSAPREPITANT DIMEGLUMINE
     Dosage: PROPHYLAXIS OF VOMITING, 1 BEFORE CHEMOTHERAPY
     Route: 042
     Dates: start: 20111027, end: 20111027
  10. DEXAMETHASON [Concomitant]
     Active Substance: DEXAMETHASONE
     Indication: PROPHYLAXIS
     Dosage: PROPHYLAXIS OF VOMITUS, EDEMA, ALLERGY. ROUTE OF ADMINISTRATION: IV AND ORAL
     Route: 042
     Dates: start: 20111026, end: 20111026
  11. DEXAMETHASON [Concomitant]
     Active Substance: DEXAMETHASONE
     Indication: HYPERSENSITIVITY
  12. LENOGRASTIM [Concomitant]
     Active Substance: LENOGRASTIM
     Dosage: GCSF GRANOCYTE (LENOGRASTIM). PROPHYLAXIS OF NEUTROPENIA
     Route: 058
     Dates: start: 20111101, end: 20111105
  13. IMODIUM [Concomitant]
     Active Substance: LOPERAMIDE HYDROCHLORIDE
     Indication: DIARRHOEA
     Dosage: MAX UP TO 8/DAY
     Route: 048
     Dates: start: 20110714, end: 20111110

REACTIONS (10)
  - Mucosal inflammation [Recovered/Resolved with Sequelae]
  - Vomiting [Recovered/Resolved]
  - Hypoproteinaemia [Recovered/Resolved]
  - Dehydration [Recovered/Resolved]
  - Diarrhoea [Recovered/Resolved]
  - Neuralgia [Not Recovered/Not Resolved]
  - Neutropenia [Recovered/Resolved]
  - Nausea [Recovered/Resolved]
  - Renal impairment [Recovered/Resolved]
  - Palmar-plantar erythrodysaesthesia syndrome [Recovered/Resolved with Sequelae]

NARRATIVE: CASE EVENT DATE: 20110722
